FAERS Safety Report 4662023-7 (Version None)
Quarter: 2005Q2

REPORT INFORMATION
  Report Type: 
  Country: None (occurrence: None)
  Receive Date: 20050512
  Receipt Date: 20050430
  Transmission Date: 20051028
  Serious: Yes (Other)
  Sender: FDA-Public Use
  Company Number: 2005067566

PATIENT
  Sex: Male
  Weight: 165 kg

DRUGS (3)
  1. BENADRYL [Suspect]
     Indication: HYPERSENSITIVITY
     Dosage: 2 TABS BID, ORAL
     Route: 048
     Dates: start: 20010101
  2. ETHANOL (ETHANOL) [Suspect]
     Dosage: ORAL
     Route: 048
     Dates: start: 20010101
  3. CANNABIS (CANNABIS0 [Suspect]
     Dosage: INHALATION
     Route: 055
     Dates: start: 20010101

REACTIONS (4)
  - ALCOHOL USE [None]
  - ASTHENIA [None]
  - DRUG DEPENDENCE [None]
  - HEART RATE INCREASED [None]
